FAERS Safety Report 23480786 (Version 1)
Quarter: 2024Q1

REPORT INFORMATION
  Report Type: Spontaneous
  Country: RS (occurrence: RS)
  Receive Date: 20240205
  Receipt Date: 20240205
  Transmission Date: 20240410
  Serious: No
  Sender: FDA-Public Use
  Company Number: RS-ALKEM LABORATORIES LIMITED-RS-ALKEM-2023-16570

PATIENT
  Age: 26 Year
  Sex: Male

DRUGS (7)
  1. MESALAMINE [Suspect]
     Active Substance: MESALAMINE
     Indication: Colitis ulcerative
     Dosage: UNK
     Route: 048
  2. MESALAMINE [Suspect]
     Active Substance: MESALAMINE
     Dosage: UNK
     Route: 054
  3. MESALAMINE [Suspect]
     Active Substance: MESALAMINE
     Dosage: 3 G/DAY
     Route: 048
  4. MESALAMINE [Suspect]
     Active Substance: MESALAMINE
     Dosage: UNK (RE-INTRODUCED)
     Route: 065
  5. ESOMEPRAZOLE [Concomitant]
     Active Substance: ESOMEPRAZOLE
     Indication: Colitis ulcerative
     Dosage: 20 MILLIGRAM, BID
     Route: 048
  6. PREDNISOLONE [Concomitant]
     Active Substance: PREDNISOLONE
     Indication: Colitis ulcerative
     Dosage: 20 MG/DAY
     Route: 048
  7. PREDNISOLONE [Concomitant]
     Active Substance: PREDNISOLONE
     Dosage: UNK (TAPERED)
     Route: 065

REACTIONS (1)
  - Photosensitivity reaction [Recovered/Resolved]
